FAERS Safety Report 12573459 (Version 2)
Quarter: 2016Q4

REPORT INFORMATION
  Report Type: Report from Study
  Country: FR (occurrence: FR)
  Receive Date: 20160720
  Receipt Date: 20161205
  Transmission Date: 20170207
  Serious: Yes (Death, Other)
  Sender: FDA-Public Use
  Company Number: FR-CELGENEUS-FRA-2016071483

PATIENT

DRUGS (1)
  1. REVLIMID [Suspect]
     Active Substance: LENALIDOMIDE
     Indication: DIFFUSE LARGE B-CELL LYMPHOMA
     Dosage: 25MG
     Route: 048

REACTIONS (21)
  - Diarrhoea [Unknown]
  - Rash [Unknown]
  - Lymphopenia [Unknown]
  - Cholestasis [Unknown]
  - Sepsis [Fatal]
  - Embolism [Fatal]
  - Lymphoma [Fatal]
  - Neutropenia [Fatal]
  - Thrombocytopenia [Unknown]
  - Atrial fibrillation [Unknown]
  - Constipation [Unknown]
  - Decreased appetite [Unknown]
  - Muscle spasms [Unknown]
  - Dizziness [Unknown]
  - Oedema [Unknown]
  - Diffuse large B-cell lymphoma recurrent [Unknown]
  - Neuralgia [Unknown]
  - Vision blurred [Unknown]
  - Asthenia [Unknown]
  - Anaemia [Unknown]
  - Dysgeusia [Unknown]
